FAERS Safety Report 6082819-7 (Version None)
Quarter: 2009Q1

REPORT INFORMATION
  Report Type: 
  Country: None (occurrence: None)
  Receive Date: 20090218
  Receipt Date: 20090210
  Transmission Date: 20090719
  Serious: Yes (Hospitalization)
  Sender: FDA-Public Use
  Company Number: US-ELI_LILLY_AND_COMPANY-US200812002355

PATIENT
  Sex: Female
  Weight: 92.517 kg

DRUGS (11)
  1. BYETTA [Suspect]
     Dosage: 5 UG, UNKNOWN
     Route: 065
     Dates: start: 20061101, end: 20070403
  2. HYDROCHLOROTHIAZIDE [Concomitant]
     Dosage: 25 MG, DAILY (1/D)
     Route: 048
  3. SYNTHROID [Concomitant]
     Dosage: 100 UG, DAILY (1/D)
     Route: 048
  4. GLUCOPHAGE [Concomitant]
     Dosage: 500 MG, DAILY (1/D)
     Route: 048
  5. PROTONIX /01263201/ [Concomitant]
     Dosage: 40 MG, DAILY (1/D)
     Route: 048
  6. VYTORIN [Concomitant]
     Dosage: UNK, DAILY (1/D)
  7. MOBIC [Concomitant]
     Dosage: 7.5 MG, DAILY (1/D)
  8. GLUCOTROL XL [Concomitant]
     Dosage: 10 MG, DAILY (1/D)
     Route: 048
  9. ACCUPRIL [Concomitant]
     Dosage: 40 MG, DAILY (1/D)
     Route: 048
  10. LISINOPRIL [Concomitant]
     Dosage: 40 MG, UNKNOWN
  11. METHOCARBAMOL [Concomitant]
     Dosage: 750 MG, UNKNOWN

REACTIONS (2)
  - BLOOD GLUCOSE INCREASED [None]
  - PANCREATITIS [None]
